FAERS Safety Report 15103859 (Version 1)
Quarter: 2018Q3

REPORT INFORMATION
  Report Type: Spontaneous
  Country: US (occurrence: US)
  Receive Date: 20180703
  Receipt Date: 20180703
  Transmission Date: 20181010
  Serious: Yes (Other)
  Sender: FDA-Public Use
  Company Number: US-OTSUKA-2018_017031

PATIENT
  Sex: Female

DRUGS (2)
  1. ABILIFY [Suspect]
     Active Substance: ARIPIPRAZOLE
     Indication: INSOMNIA
  2. ABILIFY [Suspect]
     Active Substance: ARIPIPRAZOLE
     Indication: ANXIETY
     Dosage: 10 MG, QD
     Route: 065
     Dates: start: 2014, end: 201703

REACTIONS (11)
  - Metabolic surgery [Unknown]
  - Gambling disorder [Recovered/Resolved]
  - Theft [Recovered/Resolved]
  - Compulsive sexual behaviour [Recovered/Resolved]
  - Injury [Unknown]
  - Shoplifting [Recovered/Resolved]
  - Emotional distress [Unknown]
  - Neuropsychiatric symptoms [Unknown]
  - Economic problem [Unknown]
  - Loss of employment [Unknown]
  - Product use in unapproved indication [Unknown]
